FAERS Safety Report 14685900 (Version 1)
Quarter: 2018Q1

REPORT INFORMATION
  Report Type: Spontaneous
  Country: US (occurrence: US)
  Receive Date: 20180326
  Receipt Date: 20180326
  Transmission Date: 20180509
  Serious: No
  Sender: FDA-Public Use
  Company Number: None

PATIENT
  Age: 17 Year
  Sex: Female
  Weight: 52.2 kg

DRUGS (4)
  1. FLAXSEED [Concomitant]
     Active Substance: FLAX SEED
  2. MESTINON [Suspect]
     Active Substance: PYRIDOSTIGMINE BROMIDE
     Indication: OESOPHAGEAL MOTILITY DISORDER
     Route: 048
     Dates: start: 20180316
  3. SOY PROTEIN IN SMOOTHIES [Concomitant]
  4. LIQUID VITAMIN D [Concomitant]

REACTIONS (4)
  - Dizziness [None]
  - Abdominal pain upper [None]
  - Swollen tongue [None]
  - Vision blurred [None]

NARRATIVE: CASE EVENT DATE: 20180323
